FAERS Safety Report 11741739 (Version 1)
Quarter: 2015Q4

REPORT INFORMATION
  Report Type: Spontaneous
  Country: ES (occurrence: ES)
  Receive Date: 20151116
  Receipt Date: 20151116
  Transmission Date: 20160304
  Serious: Yes (Hospitalization, Other)
  Sender: FDA-Public Use
  Company Number: ES-AMGEN-ESPSP2015065424

PATIENT
  Age: 65 Year
  Sex: Female

DRUGS (16)
  1. LYRICA [Concomitant]
     Active Substance: PREGABALIN
     Indication: MUSCLE RELAXANT THERAPY
     Dosage: 1 DF, 2X/DAY
  2. ENBREL [Suspect]
     Active Substance: ETANERCEPT
     Indication: RHEUMATOID ARTHRITIS
     Dosage: 50 MG, WEEKLY
     Route: 058
     Dates: start: 20140624
  3. DICLOFENAC SODIUM. [Concomitant]
     Active Substance: DICLOFENAC SODIUM
     Indication: BONE DISORDER
     Dosage: 1 DF, 1X/DAY
  4. PALEXIA [Concomitant]
     Active Substance: TAPENTADOL HYDROCHLORIDE
     Indication: PAIN
     Dosage: 1 DF, 2X/DAY
  5. OMEPRAZOLE. [Concomitant]
     Active Substance: OMEPRAZOLE
     Indication: PROPHYLAXIS
     Dosage: 40 MG, 1X/DAY
  6. METOJECT [Concomitant]
     Active Substance: METHOTREXATE SODIUM
     Indication: RHEUMATOID ARTHRITIS
     Dosage: 1 DF, WEEKLY (1 INJECTION WEEKLY)
     Route: 058
  7. LEXATIN                            /00424801/ [Concomitant]
     Active Substance: BROMAZEPAM
     Indication: ANXIETY
     Dosage: 0.5 DF, 1X/DAY (A HALF EVERY 24 HOURS)
  8. DOLPAR [Concomitant]
     Active Substance: TRAMADOL HYDROCHLORIDE
     Indication: PAIN
     Dosage: 1 DF, 1X/DAY (1 AT NIGHTS)
  9. GELOCATIL [Concomitant]
     Active Substance: ACETAMINOPHEN
     Indication: PAIN
     Dosage: UNK, AS NEEDED
  10. LACIMEN [Concomitant]
     Indication: HYPERTENSION
     Dosage: 2 MG, 1X/DAY
  11. LEXATIN [Concomitant]
     Active Substance: BROMAZEPAM
     Indication: NERVOUSNESS
  12. LEXATIN [Concomitant]
     Active Substance: BROMAZEPAM
     Indication: ANXIETY
     Dosage: 0.5 DF, 1X/DAY (A HALF EVERY 24 HOURS)
  13. LEXATIN                            /00424801/ [Concomitant]
     Active Substance: BROMAZEPAM
     Indication: NERVOUSNESS
  14. URBASON                            /00049601/ [Concomitant]
     Active Substance: METHYLPREDNISOLONE
     Indication: RHEUMATOID ARTHRITIS
     Dosage: 0.4 MG, 1X/DAY
  15. TENORETIC [Concomitant]
     Active Substance: ATENOLOL\CHLORTHALIDONE
     Indication: HYPERTENSION
     Dosage: (A HALF EVERY 24 HOURS)0.5 DF, 1X/DAY
  16. LACIMEN [Concomitant]
     Dosage: 2 MG, 1X/DAY (A HALF TABLET AT 4 MG EVERY 24 HOURS)

REACTIONS (6)
  - Chest injury [Not Recovered/Not Resolved]
  - Joint injury [Not Recovered/Not Resolved]
  - Spontaneous haematoma [Not Recovered/Not Resolved]
  - Face injury [Not Recovered/Not Resolved]
  - Fall [Not Recovered/Not Resolved]
  - Hypotension [Not Recovered/Not Resolved]

NARRATIVE: CASE EVENT DATE: 201504
